FAERS Safety Report 11641936 (Version 1)
Quarter: 2015Q4

REPORT INFORMATION
  Report Type: Spontaneous
  Country: US (occurrence: US)
  Receive Date: 20151019
  Receipt Date: 20151019
  Transmission Date: 20160304
  Serious: Yes (Hospitalization, Disabling)
  Sender: FDA-Public Use
  Company Number: US-BAYER-2015-444417

PATIENT
  Age: 51 Year
  Sex: Female
  Weight: 79.37 kg

DRUGS (4)
  1. LORATADINE. [Concomitant]
     Active Substance: LORATADINE
     Dosage: 10 MG
  2. ALEVE [Suspect]
     Active Substance: NAPROXEN SODIUM
     Indication: HEADACHE
     Dosage: ONE PER DAY
     Dates: start: 20120130, end: 20120206
  3. ALEVE [Suspect]
     Active Substance: NAPROXEN SODIUM
     Indication: HEADACHE
     Dosage: TWO ON A COUPLE OF DAYS
     Dates: start: 20120130, end: 20120206
  4. LEVAQUIN [Suspect]
     Active Substance: LEVOFLOXACIN
     Indication: SINUSITIS
     Dosage: 1 PILL ONCE DAILY
     Route: 048

REACTIONS (12)
  - Epistaxis [None]
  - Gastrointestinal disorder [None]
  - Myalgia [None]
  - Pain in extremity [None]
  - Musculoskeletal stiffness [None]
  - Gastric disorder [None]
  - Drug ineffective [None]
  - Lethargy [Not Recovered/Not Resolved]
  - Feeling abnormal [None]
  - Fatigue [None]
  - Arthralgia [Not Recovered/Not Resolved]
  - Tendon pain [Not Recovered/Not Resolved]

NARRATIVE: CASE EVENT DATE: 20131206
